FAERS Safety Report 6005440-5 (Version None)
Quarter: 2008Q4

REPORT INFORMATION
  Report Type: 
  Country: None (occurrence: None)
  Receive Date: 20081217
  Receipt Date: 20081209
  Transmission Date: 20090506
  Serious: Yes (Hospitalization)
  Sender: FDA-Public Use
  Company Number: DE-JNJFOC-20080501518

PATIENT
  Age: 46 Year
  Sex: Male
  Weight: 95 kg

DRUGS (6)
  1. RISPERDAL CONSTA [Suspect]
     Route: 030
  2. RISPERDAL CONSTA [Suspect]
     Indication: SCHIZOPHRENIA
     Route: 030
  3. RISPERDAL [Suspect]
     Route: 048
  4. RISPERDAL [Suspect]
     Indication: SCHIZOPHRENIA
     Route: 048
  5. BISOPROLOL FUMARATE [Concomitant]
  6. ALCOHOL [Concomitant]

REACTIONS (2)
  - HALLUCINATION, AUDITORY [None]
  - SUICIDAL IDEATION [None]
